FAERS Safety Report 8992269 (Version 3)
Quarter: 2013Q2

REPORT INFORMATION
  Report Type: Spontaneous
  Country: DK (occurrence: DK)
  Receive Date: 20121231
  Receipt Date: 20130514
  Transmission Date: 20140414
  Serious: Yes (Other)
  Sender: FDA-Public Use
  Company Number: DK-AMGEN-DNKSP2012083854

PATIENT
  Age: 74 Year
  Sex: Female

DRUGS (7)
  1. ENBREL [Suspect]
     Indication: RHEUMATOID ARTHRITIS
     Dosage: 50 MG, WEEKLY
     Dates: start: 20120718, end: 20121220
  2. METHOTREXATE SODIUM [Suspect]
     Dosage: UNK
     Route: 048
     Dates: start: 20020627, end: 20061023
  3. HUMIRA [Suspect]
     Indication: RHEUMATOID ARTHRITIS
     Dosage: UNK
     Dates: start: 20050518, end: 20100318
  4. REMICADE [Suspect]
     Indication: RHEUMATOID ARTHRITIS
     Dosage: UNK
     Dates: start: 20020627, end: 20050316
  5. METOPROLOL SUCCINATE [Concomitant]
     Dosage: UNK
  6. HJERTEMAGNYL                       /00228701/ [Concomitant]
     Dosage: UNK
  7. CORODIL                            /00574902/ [Concomitant]
     Dosage: UNK

REACTIONS (3)
  - Splenomegaly [Not Recovered/Not Resolved]
  - Weight decreased [Unknown]
  - Pancytopenia [Recovered/Resolved]
